FAERS Safety Report 18752635 (Version 1)
Quarter: 2021Q1

REPORT INFORMATION
  Report Type: Spontaneous
  Country: DE (occurrence: DE)
  Receive Date: 20210118
  Receipt Date: 20210118
  Transmission Date: 20210419
  Serious: Yes (Other)
  Sender: FDA-Public Use
  Company Number: DE-ADVANZ PHARMA-202101000278

PATIENT

DRUGS (1)
  1. HYDROXYCHLOROQUINE [Suspect]
     Active Substance: HYDROXYCHLOROQUINE
     Indication: PRODUCT USED FOR UNKNOWN INDICATION
     Dosage: UNKNOWN, QUENSYL
     Route: 065
     Dates: start: 2016

REACTIONS (3)
  - Abortion [Not Recovered/Not Resolved]
  - Exposure during pregnancy [Unknown]
  - Trisomy 18 [Unknown]

NARRATIVE: CASE EVENT DATE: 2019
